FAERS Safety Report 4864408-2 (Version None)
Quarter: 2005Q4

REPORT INFORMATION
  Report Type: 
  Country: None (occurrence: None)
  Receive Date: 20051222
  Receipt Date: 20051101
  Transmission Date: 20060501
  Serious: Yes (Life-Threatening, Other)
  Sender: FDA-Public Use
  Company Number: US-BRISTOL-MYERS SQUIBB COMPANY-13165535

PATIENT
  Age: 74 Year
  Sex: Female

DRUGS (7)
  1. DEFINITY [Suspect]
     Dosage: DURATION OF THERAPY:  APPROXIMATELY ONE TO TWO MINUTES
     Route: 040
     Dates: start: 20051031, end: 20051031
  2. ATENOLOL [Concomitant]
     Route: 048
  3. LIPITOR [Concomitant]
     Route: 048
  4. CLONAZEPAM [Concomitant]
  5. ASPIRIN [Concomitant]
     Route: 048
  6. COSOPT [Concomitant]
  7. MULTI-VITAMIN [Concomitant]

REACTIONS (7)
  - CHEST PAIN [None]
  - ERYTHEMA [None]
  - EYE SWELLING [None]
  - FEELING HOT [None]
  - SWOLLEN TONGUE [None]
  - THROAT TIGHTNESS [None]
  - TREMOR [None]
